FAERS Safety Report 7548535-7 (Version None)
Quarter: 2011Q2

REPORT INFORMATION
  Report Type: 
  Country: None (occurrence: None)
  Receive Date: 20110615
  Receipt Date: 20110603
  Transmission Date: 20111010
  Serious: Yes (Hospitalization, Other)
  Sender: FDA-Public Use
  Company Number: US-BAYER-2011-001400

PATIENT
  Age: 20 Year
  Sex: Female
  Weight: 68.481 kg

DRUGS (3)
  1. YAZ [Suspect]
     Indication: ACNE
     Dosage: UNK
     Route: 048
     Dates: start: 20070201, end: 20091201
  2. NEXIUM [Concomitant]
     Dosage: UNK
     Dates: start: 20090114
  3. GI COCKTAIL [Concomitant]
     Dosage: UNK
     Dates: start: 20090114

REACTIONS (5)
  - PAIN [None]
  - EMOTIONAL DISORDER [None]
  - MENTAL DISORDER [None]
  - RENAL FAILURE ACUTE [None]
  - FLANK PAIN [None]
